FAERS Safety Report 21922652 (Version 1)
Quarter: 2023Q1

REPORT INFORMATION
  Report Type: Spontaneous
  Country: GB (occurrence: GB)
  Receive Date: 20230128
  Receipt Date: 20230128
  Transmission Date: 20230418
  Serious: Yes (Other)
  Sender: FDA-Public Use
  Company Number: None

PATIENT
  Age: 78 Year
  Sex: Male
  Weight: 89 kg

DRUGS (18)
  1. HYDROXYCHLOROQUINE SULFATE [Suspect]
     Active Substance: HYDROXYCHLOROQUINE SULFATE
     Indication: Product used for unknown indication
     Dates: start: 20221109, end: 20230105
  2. Adcal [Concomitant]
     Dates: start: 20221109
  3. ADIZEM [Concomitant]
     Active Substance: DILTIAZEM HYDROCHLORIDE
     Dates: start: 20191024
  4. ALENDRONIC ACID [Concomitant]
     Active Substance: ALENDRONIC ACID
     Dates: start: 20221109
  5. ATORVASTATIN [Concomitant]
     Active Substance: ATORVASTATIN
     Dosage: AT NIGHT
     Dates: start: 20220826
  6. DIGOXIN [Concomitant]
     Active Substance: DIGOXIN
     Dates: start: 20050621
  7. FINASTERIDE [Concomitant]
     Active Substance: FINASTERIDE
     Dates: start: 20220818
  8. FOLIC ACID [Concomitant]
     Active Substance: FOLIC ACID
     Dosage: EXCEPT THE DAYS YOU TAKE
     Dates: start: 20220906
  9. METHOTREXATE [Concomitant]
     Active Substance: METHOTREXATE
     Dosage: WEEKLY
     Dates: start: 20221109
  10. CARBOXYMETHYLCELLULOSE SODIUM\GLYCERIN [Concomitant]
     Active Substance: CARBOXYMETHYLCELLULOSE SODIUM\GLYCERIN
     Dosage: 1-2 DROPS BOTH EYES AS REQUIRED, AS NECESSARY
     Dates: start: 20170214
  11. ACETAMINOPHEN [Concomitant]
     Active Substance: ACETAMINOPHEN
     Dosage: TAKE ONE OR TWO TABLETS FOUR TIMES/DAY NEVER AT
     Dates: start: 20170530
  12. PREDNISOLONE [Concomitant]
     Active Substance: PREDNISOLONE
     Dosage: 20MG ONCE A DAY  FOR ONE WEEK THEN REDUCE TO  10MG ONCE A DAY FOR 2  WEEKS THEN DRGREEN TO REVIEW
     Dates: start: 20230109
  13. RAMIPRIL [Concomitant]
     Active Substance: RAMIPRIL
     Dates: start: 20170530
  14. SILDENAFIL [Concomitant]
     Active Substance: SILDENAFIL
     Dosage: 1/2 HOUR PRIOR TO SEXUAL ACTIVITY
     Dates: start: 20191024
  15. SODIUM ALGINATE [Concomitant]
     Active Substance: SODIUM ALGINATE
     Dosage: ONE OR TWO 5ML SPOONFULS TO BE TAKEN UP TO FOUR
     Dates: start: 20170214
  16. TRAMADOL [Concomitant]
     Active Substance: TRAMADOL
     Dosage: TAKE ONE TO TWO CAPSULES EVERY FOUR TO SIX HOUR
     Dates: start: 20170530
  17. WARFARIN SODIUM [Concomitant]
     Active Substance: WARFARIN SODIUM
     Dosage: USE AS DIRECTED
     Dates: start: 20170214
  18. ZOPICLONE [Concomitant]
     Active Substance: ZOPICLONE
     Dosage: TAKE ONE AT NIGHT AS AND WHEN REQUIRED, USE SPA
     Dates: start: 20170214

REACTIONS (1)
  - Hallucination [Recovered/Resolved]
